FAERS Safety Report 5455074-6 (Version None)
Quarter: 2007Q3

REPORT INFORMATION
  Report Type: 
  Country: None (occurrence: None)
  Receive Date: 20070913
  Receipt Date: 20070827
  Transmission Date: 20080115
  Serious: Yes (Other)
  Sender: FDA-Public Use
  Company Number: 6037453

PATIENT
  Age: 74 Year
  Sex: Male

DRUGS (2)
  1. CIPROFLOXACIN [Suspect]
     Indication: DIARRHOEA
     Dosage: 1500 MG (750 MG, 2 IN 1 D)
  2. CIPROFLOXACIN [Suspect]
     Indication: MALAISE
     Dosage: 1500 MG (750 MG, 2 IN 1 D)

REACTIONS (3)
  - KIDNEY FIBROSIS [None]
  - NEPHROLITHIASIS [None]
  - RENAL IMPAIRMENT [None]
